FAERS Safety Report 20834670 (Version 2)
Quarter: 2022Q2

REPORT INFORMATION
  Report Type: Spontaneous
  Country: AT (occurrence: AT)
  Receive Date: 20220516
  Receipt Date: 20220517
  Transmission Date: 20220721
  Serious: Yes (Other)
  Sender: FDA-Public Use
  Company Number: AT-NOVARTISPH-NVSC2022AT110557

PATIENT
  Age: 40 Year
  Sex: Female

DRUGS (22)
  1. RUXOLITINIB [Suspect]
     Active Substance: RUXOLITINIB
     Indication: Myeloproliferative neoplasm
     Dosage: 10 MG, BID (10-0-10)
     Route: 065
     Dates: start: 20200824
  2. RUXOLITINIB [Suspect]
     Active Substance: RUXOLITINIB
     Indication: Essential thrombocythaemia
     Dosage: 25 MG, QD (15-0-10)
     Route: 065
     Dates: start: 20201023
  3. RUXOLITINIB [Suspect]
     Active Substance: RUXOLITINIB
     Dosage: 15 MG, BID (15-0-15)
     Route: 065
     Dates: start: 20201126
  4. RUXOLITINIB [Suspect]
     Active Substance: RUXOLITINIB
     Dosage: 15 MG, BID (15-0-15)
     Route: 065
     Dates: start: 20210122
  5. RUXOLITINIB [Suspect]
     Active Substance: RUXOLITINIB
     Dosage: 20 MG, QD (15-0-5)
     Route: 065
     Dates: start: 20210219
  6. RUXOLITINIB [Suspect]
     Active Substance: RUXOLITINIB
     Dosage: 20 MG, QD (15-0-5)
     Route: 065
     Dates: start: 20210316
  7. RUXOLITINIB [Suspect]
     Active Substance: RUXOLITINIB
     Dosage: 5 MG
     Route: 065
     Dates: start: 20210415
  8. RUXOLITINIB [Suspect]
     Active Substance: RUXOLITINIB
     Dosage: 5 MG
     Route: 065
     Dates: start: 20210504
  9. RUXOLITINIB [Suspect]
     Active Substance: RUXOLITINIB
     Dosage: 10 MG (+5 MO)
     Route: 065
     Dates: start: 20210913
  10. RUXOLITINIB [Suspect]
     Active Substance: RUXOLITINIB
     Dosage: 15 MG (+7 MO)
     Route: 065
     Dates: start: 20211130
  11. RUXOLITINIB [Suspect]
     Active Substance: RUXOLITINIB
     Dosage: 20 MG (+09 MO)
     Route: 065
     Dates: start: 20220114
  12. RUXOLITINIB [Suspect]
     Active Substance: RUXOLITINIB
     Dosage: 15 MG (+12 MO)
     Route: 065
     Dates: start: 20220407
  13. ASPIRIN [Suspect]
     Active Substance: ASPIRIN
     Indication: Product used for unknown indication
     Dosage: UNK (100)
     Route: 065
     Dates: start: 200504
  14. ASPIRIN [Suspect]
     Active Substance: ASPIRIN
     Dosage: UNK (50)
     Route: 065
     Dates: start: 2010, end: 2020
  15. ASPIRIN [Suspect]
     Active Substance: ASPIRIN
     Dosage: UNK (50)
     Route: 065
     Dates: start: 20200727
  16. ELTROMBOPAG OLAMINE [Suspect]
     Active Substance: ELTROMBOPAG OLAMINE
     Indication: Product used for unknown indication
     Dosage: UNK
     Route: 065
     Dates: start: 20210415
  17. ELTROMBOPAG OLAMINE [Suspect]
     Active Substance: ELTROMBOPAG OLAMINE
     Dosage: UNK
     Route: 065
     Dates: start: 20210504
  18. ELTROMBOPAG OLAMINE [Suspect]
     Active Substance: ELTROMBOPAG OLAMINE
     Dosage: UNK
     Route: 065
     Dates: start: 20210913
  19. ELTROMBOPAG OLAMINE [Suspect]
     Active Substance: ELTROMBOPAG OLAMINE
     Dosage: UNK
     Route: 065
     Dates: start: 20211130
  20. ELTROMBOPAG OLAMINE [Suspect]
     Active Substance: ELTROMBOPAG OLAMINE
     Dosage: UNK
     Route: 065
     Dates: start: 20220114
  21. VIDAZA [Suspect]
     Active Substance: AZACITIDINE
     Indication: Product used for unknown indication
     Dosage: 105 MG/M2 (D 1-5)
     Route: 058
     Dates: start: 20210219
  22. METHYLPREDNISOLONE [Concomitant]
     Active Substance: METHYLPREDNISOLONE
     Indication: Product used for unknown indication
     Dosage: UNK
     Route: 065
     Dates: start: 20210415

REACTIONS (16)
  - Myelofibrosis [Unknown]
  - Fibrosis [Unknown]
  - Osteosclerosis [Unknown]
  - Platelet count decreased [Unknown]
  - Haemoglobin decreased [Unknown]
  - White blood cell count decreased [Unknown]
  - Acute graft versus host disease in skin [Unknown]
  - Acute graft versus host disease in intestine [Unknown]
  - Chronic graft versus host disease in liver [Recovering/Resolving]
  - Chronic graft versus host disease in eye [Recovering/Resolving]
  - Chronic graft versus host disease oral [Recovering/Resolving]
  - Blood lactate dehydrogenase increased [Unknown]
  - White blood cell count increased [Unknown]
  - Product use issue [Unknown]
  - Product use in unapproved indication [Unknown]
  - Incorrect dose administered [Unknown]

NARRATIVE: CASE EVENT DATE: 20050401
